FAERS Safety Report 8846629 (Version 1)
Quarter: 2012Q4

REPORT INFORMATION
  Report Type: 
  Country: US (occurrence: US)
  Receive Date: 20121017
  Receipt Date: 20121017
  Transmission Date: 20130627
  Serious: No
  Sender: FDA-Public Use
  Company Number: US-BAYER-2012-107851

PATIENT

DRUGS (4)
  1. ALEVE CAPLET/TABLET,MIDOL EXTENDED RELIEF CAPLET [Suspect]
  2. EXTRA STRENGTH ACETAMINOPHEN [Concomitant]
  3. TYLENOL PM [Concomitant]
  4. HEAD CONGESTION MEDICINE [Concomitant]

REACTIONS (2)
  - Arthralgia [None]
  - Discomfort [None]
